FAERS Safety Report 17511645 (Version 5)
Quarter: 2020Q1

REPORT INFORMATION
  Report Type: Report from Study
  Country: US (occurrence: US)
  Receive Date: 20200307
  Receipt Date: 20200327
  Transmission Date: 20200409
  Serious: Yes (Other)
  Sender: FDA-Public Use
  Company Number: NVSC2020US066119

PATIENT
  Age: 54 Year
  Sex: Female

DRUGS (1)
  1. GILENYA [Suspect]
     Active Substance: FINGOLIMOD HYDROCHLORIDE
     Indication: RELAPSING-REMITTING MULTIPLE SCLEROSIS
     Dosage: 0.5 MG, QD
     Route: 048
     Dates: start: 20200305

REACTIONS (6)
  - Cerebrovascular accident [Unknown]
  - Nausea [Unknown]
  - Sluggishness [Recovering/Resolving]
  - Dizziness [Unknown]
  - Temporal arteritis [Unknown]
  - Vomiting [Unknown]

NARRATIVE: CASE EVENT DATE: 20200305
